FAERS Safety Report 10970301 (Version 2)
Quarter: 2015Q2

REPORT INFORMATION
  Report Type: Spontaneous
  Country: FR (occurrence: FR)
  Receive Date: 20150331
  Receipt Date: 20150408
  Transmission Date: 20150821
  Serious: Yes (Death)
  Sender: FDA-Public Use
  Company Number: FR-PFIZER INC-2015106731

PATIENT
  Age: 77 Year
  Sex: Male

DRUGS (10)
  1. LASILIX [Concomitant]
     Active Substance: FUROSEMIDE
     Dosage: 40 (UNKNOWN UNITS), 1X/DAY
  2. ATENOLOL. [Concomitant]
     Active Substance: ATENOLOL
     Dosage: 50 (UNKNOWN UNITS)
  3. VALSARTAN. [Concomitant]
     Active Substance: VALSARTAN
     Dosage: 80 (UNKNOWN UNITS)
  4. FERO-GRAD VITAMINE C [Concomitant]
     Dosage: 500 (UNKNOWN UNITS)
  5. PARACETAMOL [Concomitant]
     Active Substance: ACETAMINOPHEN
  6. IXPRIM [Concomitant]
     Active Substance: ACETAMINOPHEN\TRAMADOL HYDROCHLORIDE
     Dosage: UNK, AS NEEDED
  7. KEPPRA [Suspect]
     Active Substance: LEVETIRACETAM
     Dosage: 500 MG, 2X/DAY
     Route: 048
     Dates: start: 20150126, end: 20150316
  8. AMOXICILLIN TRIHYDRATE [Suspect]
     Active Substance: AMOXICILLIN
     Dosage: UNK
     Route: 048
     Dates: start: 20150312, end: 20150312
  9. XALKORI [Suspect]
     Active Substance: CRIZOTINIB
     Indication: LUNG CARCINOMA CELL TYPE UNSPECIFIED STAGE IV
     Dosage: 250 MG, 2X/DAY
     Route: 048
     Dates: start: 20150121, end: 20150316
  10. KARDEGIC [Concomitant]
     Active Substance: ASPIRIN LYSINE
     Dosage: 75 (UNKNOWN UNITS)

REACTIONS (4)
  - Cardiac arrest [Fatal]
  - Disease progression [Unknown]
  - Lung carcinoma cell type unspecified stage IV [Unknown]
  - Bronchitis [Unknown]

NARRATIVE: CASE EVENT DATE: 20150126
